FAERS Safety Report 5688877-3 (Version None)
Quarter: 2008Q1

REPORT INFORMATION
  Report Type: 
  Country: None (occurrence: None)
  Receive Date: 20080328
  Receipt Date: 20080328
  Transmission Date: 20080703
  Serious: No
  Sender: FDA-Public Use
  Company Number: None

PATIENT
  Age: 78 Year
  Sex: Male

DRUGS (2)
  1. LISINOPRIL [Suspect]
     Indication: DIABETES MELLITUS
     Dates: start: 20060421, end: 20080118
  2. LISINOPRIL [Suspect]
     Indication: HYPERTENSION
     Dates: start: 20060421, end: 20080118

REACTIONS (1)
  - HYPERKALAEMIA [None]
